FAERS Safety Report 6531329-9 (Version None)
Quarter: 2010Q1

REPORT INFORMATION
  Report Type: 
  Country: None (occurrence: None)
  Receive Date: 20100108
  Receipt Date: 20091109
  Transmission Date: 20100710
  Serious: No
  Sender: FDA-Public Use
  Company Number: A0803644A

PATIENT
  Age: 68 Year
  Sex: Female

DRUGS (1)
  1. TYKERB [Suspect]
     Indication: METASTATIC UTERINE CANCER
     Dosage: 5TAB PER DAY
     Dates: start: 20090813

REACTIONS (4)
  - BLISTER [None]
  - DIARRHOEA [None]
  - PARAESTHESIA [None]
  - SKIN EXFOLIATION [None]
